FAERS Safety Report 6442094-8 (Version None)
Quarter: 2009Q4

REPORT INFORMATION
  Report Type: 
  Country: None (occurrence: None)
  Receive Date: 20091116
  Receipt Date: 20091103
  Transmission Date: 20100525
  Serious: Yes (Disabling, Other)
  Sender: FDA-Public Use
  Company Number: PHHY2009GB48251

PATIENT
  Age: 47 Year
  Sex: Female
  Weight: 100 kg

DRUGS (9)
  1. CYCLOSPORINE [Suspect]
     Indication: COLITIS ULCERATIVE
     Dosage: 200 MG, UNK
     Route: 042
     Dates: start: 20090908
  2. AMLODIPINE [Concomitant]
     Dosage: 5 MG, QD
     Route: 048
  3. BALSALAZIDE [Concomitant]
     Indication: COLITIS ULCERATIVE
     Dosage: 2.25 G, UNK
     Route: 048
  4. CALCICHEW D3 [Concomitant]
     Dosage: 2 DF, QD
     Route: 048
  5. FERROUS SULFATE TAB [Concomitant]
     Dosage: 200 MG, QD
     Route: 048
  6. NYSTATIN [Concomitant]
     Dosage: 1 ML, QD
     Route: 048
  7. OMEPRAZOLE [Concomitant]
     Dosage: 40 MG, QD
     Route: 048
  8. PREDNISOLONE [Concomitant]
     Indication: COLITIS ULCERATIVE
     Dosage: 30 MG, UNK
     Route: 048
  9. SYMBICORT [Concomitant]
     Dosage: 2 DF, BID

REACTIONS (2)
  - HAEMORRHAGE [None]
  - REVERSIBLE POSTERIOR LEUKOENCEPHALOPATHY SYNDROME [None]
